FAERS Safety Report 6971638-2 (Version None)
Quarter: 2010Q3

REPORT INFORMATION
  Report Type: 
  Country: None (occurrence: None)
  Receive Date: 20100908
  Receipt Date: 20100831
  Transmission Date: 20110219
  Serious: Yes (Life-Threatening)
  Sender: FDA-Public Use
  Company Number: JP-AMGEN-QUU431029

PATIENT
  Sex: Male
  Weight: 73 kg

DRUGS (9)
  1. ENBREL [Suspect]
     Indication: RHEUMATOID ARTHRITIS
     Route: 058
     Dates: start: 20090427, end: 20100607
  2. ALFAROL [Concomitant]
     Route: 048
     Dates: start: 20090601
  3. AZULFIDINE [Concomitant]
     Indication: RHEUMATOID ARTHRITIS
     Route: 048
     Dates: start: 20080912
  4. ONE-ALPHA [Concomitant]
     Route: 048
     Dates: start: 20080926, end: 20090531
  5. PYRIDOXAL PHOSPHATE [Concomitant]
     Route: 048
     Dates: start: 20090406, end: 20100103
  6. KETOPROFEN [Concomitant]
     Dosage: UNKNOWN
     Route: 061
     Dates: start: 20090427
  7. COTRIM [Concomitant]
     Route: 048
     Dates: start: 20100104
  8. FOSAMAX [Concomitant]
     Route: 048
     Dates: start: 20080702
  9. ISCOTIN [Concomitant]
     Route: 048
     Dates: start: 20090406, end: 20100103

REACTIONS (2)
  - PROSTATE CANCER [None]
  - URINARY TRACT INFECTION [None]
